FAERS Safety Report 14992102 (Version 1)
Quarter: 2018Q2

REPORT INFORMATION
  Report Type: Report from Study
  Country: US (occurrence: US)
  Receive Date: 20180608
  Receipt Date: 20180608
  Transmission Date: 20180711
  Serious: Yes (Hospitalization, Other)
  Sender: FDA-Public Use
  Company Number: US-JAZZ-2018-US-009181

PATIENT
  Sex: Male

DRUGS (17)
  1. XYREM [Suspect]
     Active Substance: SODIUM OXYBATE
     Dosage: 4.5 G, BID
     Route: 048
     Dates: start: 201011, end: 201406
  2. MODAFINIL. [Concomitant]
     Active Substance: MODAFINIL
  3. BUPROPION. [Concomitant]
     Active Substance: BUPROPION
  4. XYREM [Suspect]
     Active Substance: SODIUM OXYBATE
     Dosage: DOSE ADJUSTMENT
     Dates: start: 201010, end: 201011
  5. XYREM [Suspect]
     Active Substance: SODIUM OXYBATE
     Dosage: 3.5 G, BID
     Route: 048
     Dates: start: 201506, end: 201507
  6. LITHIUM CARBONATE. [Concomitant]
     Active Substance: LITHIUM CARBONATE
  7. METHYLPHENIDAT [Concomitant]
     Active Substance: METHYLPHENIDATE
  8. XYREM [Suspect]
     Active Substance: SODIUM OXYBATE
     Indication: NARCOLEPSY
     Dosage: 2.25 G, BID
     Route: 048
     Dates: start: 201010, end: 201010
  9. XYREM [Suspect]
     Active Substance: SODIUM OXYBATE
     Dosage: 4.5 G, BID
     Route: 048
     Dates: start: 201708
  10. NUVIGIL [Concomitant]
     Active Substance: ARMODAFINIL
  11. TRILEPTAL [Concomitant]
     Active Substance: OXCARBAZEPINE
  12. LAMICTAL [Concomitant]
     Active Substance: LAMOTRIGINE
  13. TOPIRAMATE. [Concomitant]
     Active Substance: TOPIRAMATE
  14. RISPERDAL [Concomitant]
     Active Substance: RISPERIDONE
  15. WELLBUTRIN [Concomitant]
     Active Substance: BUPROPION HYDROCHLORIDE
  16. LEVOTHYROXIN [Concomitant]
     Active Substance: LEVOTHYROXINE
  17. MELATONIN [Concomitant]
     Active Substance: MELATONIN

REACTIONS (1)
  - Hospitalisation [Unknown]
